FAERS Safety Report 5313506-8 (Version None)
Quarter: 2007Q2

REPORT INFORMATION
  Report Type: 
  Country: None (occurrence: None)
  Receive Date: 20070424
  Receipt Date: 20070418
  Transmission Date: 20071010
  Serious: Yes (Death, Hospitalization, Other)
  Sender: FDA-Public Use
  Company Number: 430001N07JPN

PATIENT
  Age: 28 Year
  Sex: Male

DRUGS (19)
  1. NOVANTRONE [Suspect]
     Indication: ACUTE MYELOID LEUKAEMIA RECURRENT
     Dosage: INTRAVENOUS (NOT OTHERWISE SPECIFIED)
     Route: 042
     Dates: start: 20060814, end: 20060816
  2. MYLOTARG [Suspect]
     Indication: ACUTE MYELOID LEUKAEMIA RECURRENT
     Dosage: 6 MG/M2, 1 IN 1 DAYS, INTRAVENOUS (NOT OTHERWISE SPECIFIED); INTRAVENOUS (NOT OTHERWISE SPECIFIED)
     Route: 042
     Dates: start: 20060609, end: 20060609
  3. MYLOTARG [Suspect]
     Indication: ACUTE MYELOID LEUKAEMIA RECURRENT
     Dosage: 6 MG/M2, 1 IN 1 DAYS, INTRAVENOUS (NOT OTHERWISE SPECIFIED); INTRAVENOUS (NOT OTHERWISE SPECIFIED)
     Route: 042
     Dates: start: 20060623, end: 20060623
  4. CYTARABINE [Suspect]
     Indication: ACUTE MYELOID LEUKAEMIA RECURRENT
     Dosage: INTRAVENOUS (NOT OTHERWISE SPECIFIED); INTRAVENOUS (NOT OTHERWISE SPECIFIED)
     Route: 042
     Dates: start: 20060610, end: 20060616
  5. CYTARABINE [Suspect]
     Indication: ACUTE MYELOID LEUKAEMIA RECURRENT
     Dosage: INTRAVENOUS (NOT OTHERWISE SPECIFIED); INTRAVENOUS (NOT OTHERWISE SPECIFIED)
     Route: 042
     Dates: start: 20060814, end: 20060818
  6. IDARUBICIN HCL [Suspect]
     Indication: ACUTE MYELOID LEUKAEMIA RECURRENT
     Dosage: INTRAVENOUS (NOT OTHERWISE SPECIFIED)
     Dates: start: 20060610, end: 20060616
  7. GRANISETRON [Concomitant]
  8. HYDROCORTISONE SODIUM SUCCINATE [Concomitant]
  9. HEPARIN-FRACTION, SODIUM SALT [Concomitant]
  10. ITRACONAZOLE [Concomitant]
  11. FAMOTIDINE [Concomitant]
  12. TEPRENONE [Concomitant]
  13. BACTRIM [Concomitant]
  14. POLYMYXIN B SULFATE [Concomitant]
  15. MONOAMNONIUM GLYCYRRHIZINATE/GLYCINE/L-CYSTEINE (GLYCYRRHIZIC ACID, AM [Concomitant]
  16. CHLORPHENIRAMINE MALEATE [Concomitant]
  17. ACETAMINOPHEN [Concomitant]
  18. HYDROCORTISONE SODIUM SUCCINATE [Concomitant]
  19. DIPYRIDAMOLE [Concomitant]

REACTIONS (15)
  - ACUTE RESPIRATORY DISTRESS SYNDROME [None]
  - ANAEMIA [None]
  - CHILLS [None]
  - CONDITION AGGRAVATED [None]
  - DIARRHOEA [None]
  - EPISTAXIS [None]
  - HEADACHE [None]
  - HEPATIC FUNCTION ABNORMAL [None]
  - MUCOUS MEMBRANE DISORDER [None]
  - NEUTROPHIL COUNT DECREASED [None]
  - PLATELET COUNT DECREASED [None]
  - PYREXIA [None]
  - SEPSIS [None]
  - SKIN ULCER [None]
  - STOMATITIS [None]
